FAERS Safety Report 6044482-0 (Version None)
Quarter: 2009Q1

REPORT INFORMATION
  Report Type: 
  Country: None (occurrence: None)
  Receive Date: 20090113
  Receipt Date: 20090113
  Transmission Date: 20090719
  Serious: Yes (Hospitalization)
  Sender: FDA-Public Use
  Company Number: None

PATIENT
  Age: 64 Year
  Sex: Female
  Weight: 129 kg

DRUGS (17)
  1. WARFARIN SODIUM [Suspect]
     Indication: PULMONARY EMBOLISM
     Dosage: 2.5 MG QMON-WED-FRI PO
     Route: 048
  2. WARFARIN SODIUM [Suspect]
     Dosage: 5 MG QSUN-TUE-THUR-SAT PO
     Route: 048
  3. DILTIAZEM [Concomitant]
  4. TRAZODONE HCL [Concomitant]
  5. HYDROCHLOROTHIAZIDE [Concomitant]
  6. FENOFIBRATE [Concomitant]
  7. LISINOPRIL [Concomitant]
  8. METFORMIN [Concomitant]
  9. PIOGLITAZONE [Concomitant]
  10. ASPIRIN [Concomitant]
  11. ARIPIPRAZOLE [Concomitant]
  12. CLONAZEPAM [Concomitant]
  13. TEMAZEPAM [Concomitant]
  14. LEVOTHYROXINE [Concomitant]
  15. FIBER LAXATIVE [Concomitant]
  16. OMEPRAZOLE [Concomitant]
  17. ESCITAOLPRAM [Concomitant]

REACTIONS (7)
  - ACUTE RESPIRATORY FAILURE [None]
  - ASTHENIA [None]
  - BLOOD URINE PRESENT [None]
  - EAR HAEMORRHAGE [None]
  - HYPOTENSION [None]
  - INTERNATIONAL NORMALISED RATIO INCREASED [None]
  - OCCULT BLOOD POSITIVE [None]
